FAERS Safety Report 10533469 (Version 3)
Quarter: 2014Q4

REPORT INFORMATION
  Report Type: Spontaneous
  Country: US (occurrence: US)
  Receive Date: 20141022
  Receipt Date: 20141104
  Transmission Date: 20150529
  Serious: Yes (Death, Hospitalization, Other)
  Sender: FDA-Public Use
  Company Number: US-SA-2014SA142494

PATIENT
  Age: 10 Year
  Sex: Female
  Weight: 46.6 kg

DRUGS (14)
  1. CLOBAZAM [Concomitant]
     Active Substance: CLOBAZAM
  2. ALBUTEROL. [Concomitant]
     Active Substance: ALBUTEROL
     Route: 055
  3. KEPPRA [Concomitant]
     Active Substance: LEVETIRACETAM
     Dosage: DOSE:100 MILLIGRAM(S)/MILLILITRE
  4. LORAZEPAM. [Concomitant]
     Active Substance: LORAZEPAM
     Route: 048
  5. MIRALAX [Concomitant]
     Active Substance: POLYETHYLENE GLYCOL 3350
  6. LACTOBACILLUS PLANTARUM [Concomitant]
     Active Substance: LACTOBACILLUS PLANTARUM
  7. CLONIDINE. [Concomitant]
     Active Substance: CLONIDINE
  8. CEREZYME [Suspect]
     Active Substance: IMIGLUCERASE
     Indication: GAUCHER^S DISEASE
     Route: 041
     Dates: start: 200602, end: 20140926
  9. HYDROCODONE W/ACETAMINOPHEN [Concomitant]
     Active Substance: ACETAMINOPHEN\HYDROCODONE BITARTRATE
     Indication: PAIN
  10. LAMICTAL [Concomitant]
     Active Substance: LAMOTRIGINE
  11. BACLOFEN. [Concomitant]
     Active Substance: BACLOFEN
  12. TUMS EX [Concomitant]
     Active Substance: CALCIUM CARBONATE
  13. HELIOX [Concomitant]
     Active Substance: OXYGEN
     Dates: start: 20140828
  14. DIAZEPAM. [Concomitant]
     Active Substance: DIAZEPAM

REACTIONS (9)
  - Pneumonia [Unknown]
  - Acute kidney injury [Unknown]
  - Vocal cord disorder [Unknown]
  - Seizure [Unknown]
  - Respiratory distress [Unknown]
  - Septic shock [Unknown]
  - Encephalopathy [Fatal]
  - Stridor [Recovering/Resolving]
  - Dyspnoea [Unknown]

NARRATIVE: CASE EVENT DATE: 20140821
